FAERS Safety Report 9207918 (Version 2)
Quarter: 2013Q4

REPORT INFORMATION
  Report Type: Spontaneous
  Country: US (occurrence: US)
  Receive Date: 20130403
  Receipt Date: 20131106
  Transmission Date: 20140711
  Serious: Yes (Hospitalization, Disabling, Other)
  Sender: FDA-Public Use
  Company Number: US-BAYER-2013-040492

PATIENT
  Age: 15 Year
  Sex: Female

DRUGS (7)
  1. YAZ [Suspect]
     Dosage: UNK
     Dates: start: 2010, end: 2011
  2. YASMIN [Suspect]
     Dosage: UNK UNK, QD
     Route: 048
  3. ZOLOFT [Concomitant]
     Dosage: 100 MG, QD
  4. ACIPHEX [Concomitant]
     Indication: GASTRITIS
     Dosage: 20 MG, QD
  5. PROTOPIC [Concomitant]
     Dosage: UNK
     Dates: start: 20110801
  6. SULFAMETHOXAZOLE W/TRIMETHOPRIM [Concomitant]
     Dosage: UNK
     Dates: start: 20110806
  7. SERTRALINE [Concomitant]
     Dosage: 100 MG, UNK
     Dates: start: 20110929, end: 20111101

REACTIONS (8)
  - Gallbladder disorder [None]
  - Biliary dyskinesia [None]
  - Cholecystitis chronic [None]
  - Deformity [None]
  - Anxiety [None]
  - Injury [None]
  - Pain [None]
  - Anhedonia [None]
